FAERS Safety Report 7281419-0 (Version None)
Quarter: 2011Q1

REPORT INFORMATION
  Report Type: 
  Country: None (occurrence: None)
  Receive Date: 20110208
  Receipt Date: 20110202
  Transmission Date: 20110831
  Serious: Yes (Other)
  Sender: FDA-Public Use
  Company Number: FR-GILEAD-2010-0034400

PATIENT
  Sex: Female
  Weight: 60 kg

DRUGS (4)
  1. SUSTIVA [Concomitant]
     Route: 048
     Dates: start: 20050801, end: 20060824
  2. TARDYFERON B9 [Concomitant]
  3. TRUVADA [Suspect]
     Dates: start: 20060824
  4. KALETRA [Concomitant]
     Indication: HIV INFECTION
     Route: 048
     Dates: start: 20060824

REACTIONS (1)
  - ABORTION SPONTANEOUS [None]
